FAERS Safety Report 6042107-1 (Version None)
Quarter: 2009Q1

REPORT INFORMATION
  Report Type: 
  Country: None (occurrence: None)
  Receive Date: 20090116
  Receipt Date: 20090109
  Transmission Date: 20090719
  Serious: Yes (Hospitalization)
  Sender: FDA-Public Use
  Company Number: PHHO2008IE01673

PATIENT
  Sex: Female

DRUGS (4)
  1. PLACEBO OR VALSARTAN [Suspect]
     Indication: CARDIOVASCULAR DISORDER
     Dosage: CODE NOT BROKEN
     Route: 048
     Dates: start: 20021204, end: 20051021
  2. BLINDED NO TREATMENT RECEIVED NOMED [Suspect]
     Indication: GLUCOSE TOLERANCE IMPAIRED
     Dosage: CODE NOT BROKEN
     Route: 048
     Dates: start: 20021204, end: 20051021
  3. BLINDED PLACEBO PLACEBO [Suspect]
     Indication: GLUCOSE TOLERANCE IMPAIRED
     Dosage: CODE NOT BROKEN
     Route: 048
     Dates: start: 20021204, end: 20051021
  4. STARLIX [Suspect]
     Indication: GLUCOSE TOLERANCE IMPAIRED
     Dosage: CODE NOT BROKEN
     Route: 048
     Dates: start: 20021204, end: 20051021

REACTIONS (11)
  - ANGIOPLASTY [None]
  - CHEST PAIN [None]
  - CORONARY ARTERIAL STENT INSERTION [None]
  - CORONARY ARTERY DISEASE [None]
  - CORONARY ARTERY STENOSIS [None]
  - DISEASE PROGRESSION [None]
  - GOITRE [None]
  - LOSS OF CONSCIOUSNESS [None]
  - MYOCARDIAL ISCHAEMIA [None]
  - PALPITATIONS [None]
  - SENSATION OF PRESSURE [None]
